FAERS Safety Report 6521363-7 (Version None)
Quarter: 2009Q4

REPORT INFORMATION
  Report Type: 
  Country: None (occurrence: None)
  Receive Date: 20091214
  Receipt Date: 20090527
  Transmission Date: 20100525
  Serious: Yes (Other)
  Sender: FDA-Public Use
  Company Number: 635562

PATIENT
  Age: 49 Year
  Sex: Male
  Weight: 71.2 kg

DRUGS (2)
  1. PEGASYS [Suspect]
     Indication: HEPATITIS C
     Dosage: 1 PER 1 WEEK
     Dates: start: 20090402, end: 20090616
  2. RIBAVIRIN [Suspect]
     Indication: HEPATITIS C
     Dosage: ORAL
     Route: 048
     Dates: start: 20090402, end: 20090616

REACTIONS (1)
  - NEUTROPHIL COUNT DECREASED [None]
